FAERS Safety Report 6439153-2 (Version None)
Quarter: 2009Q4

REPORT INFORMATION
  Report Type: 
  Country: None (occurrence: None)
  Receive Date: 20091110
  Receipt Date: 20091026
  Transmission Date: 20100525
  Serious: Yes (Hospitalization)
  Sender: FDA-Public Use
  Company Number: 2009AC000095

PATIENT
  Age: 52 Year
  Sex: Female

DRUGS (68)
  1. DIGOXIN [Suspect]
     Dosage: 0.25 MG; PO
     Route: 048
     Dates: start: 20020120
  2. DIGOXIN [Suspect]
     Dosage: 0.25 MG;PO
     Route: 048
     Dates: start: 20021201
  3. LIDODERM [Concomitant]
  4. AZITHROMYCIN [Concomitant]
  5. LIDOCAINE [Concomitant]
  6. PROMETHAZINE [Concomitant]
  7. PROTONIX [Concomitant]
  8. LISINOPRIL [Concomitant]
  9. FUROSEMIDE [Concomitant]
  10. KLOR-CON [Concomitant]
  11. HYDROMORPHON [Concomitant]
  12. REQUIP [Concomitant]
  13. SPIRONOLACTIN [Concomitant]
  14. BENZONATATE [Concomitant]
  15. LORAZEPAM [Concomitant]
  16. AMBIEN [Concomitant]
  17. COREG [Concomitant]
  18. AVINZA [Concomitant]
  19. CYMBALTA [Concomitant]
  20. MORPHINE SULFATE [Concomitant]
  21. CLARITIN [Concomitant]
  22. STADOL [Concomitant]
  23. AMRIX [Concomitant]
  24. CLIMARA [Concomitant]
  25. VIVELLE-DOT [Concomitant]
  26. AMOXICILLIN [Concomitant]
  27. RODEC-DM [Concomitant]
  28. POTASSIUM CHLORIDE [Concomitant]
  29. TRICOR [Concomitant]
  30. ********* [Concomitant]
  31. CYMBALTA [Concomitant]
  32. CEPHALEXIN [Concomitant]
  33. NEOMYCIN/POLYMCI/HYDROCORTISONE [Concomitant]
  34. MYTUSSIN [Concomitant]
  35. PHENADOZ [Concomitant]
  36. PROMETHEGAN [Concomitant]
  37. FENTANYL-100 [Concomitant]
  38. PROAIR HFA [Concomitant]
  39. BUTALBITAL ACETAMINOPHEN AND CAFFEINE [Concomitant]
  40. HYDROXYZINE [Concomitant]
  41. FLUOCINONIDE [Concomitant]
  42. ZOLPIDEM [Concomitant]
  43. PERMETHRIN [Concomitant]
  44. TRIAMCINOLONE [Concomitant]
  45. FLUTICASONE [Concomitant]
  46. CARVEDILOL [Concomitant]
  47. PREVACID [Concomitant]
  48. TRIAZOLAM [Concomitant]
  49. ATIVAN [Concomitant]
  50. BENADRYL [Concomitant]
  51. ALDACTONE [Concomitant]
  52. MULTI-VITAMIN [Concomitant]
  53. TYLENOL (CAPLET) [Concomitant]
  54. DILAUDID [Concomitant]
  55. AVINZA [Concomitant]
  56. ESTRADIOL [Concomitant]
  57. DEMEROL [Concomitant]
  58. NITROGLYCERIN [Concomitant]
  59. FLONASE [Concomitant]
  60. COMBIVENT [Concomitant]
  61. ALDACTONE [Concomitant]
  62. TRICOR [Concomitant]
  63. OXYCODONE HCL [Concomitant]
  64. TAMAZEPEAM [Concomitant]
  65. BUTORPHANOL TARTRATE [Concomitant]
  66. SPIRONOLACTONE [Concomitant]
  67. BROMAXEFED [Concomitant]
  68. MINITRAN [Concomitant]

REACTIONS (35)
  - ABDOMINAL ADHESIONS [None]
  - ABDOMINAL PAIN UPPER [None]
  - ADNEXA UTERI MASS [None]
  - ANGINA PECTORIS [None]
  - ANXIETY DISORDER [None]
  - AORTIC VALVE INCOMPETENCE [None]
  - ARTERIOSCLEROSIS [None]
  - ASTHMA [None]
  - BUNDLE BRANCH BLOCK LEFT [None]
  - CARDIOMYOPATHY [None]
  - CHEST DISCOMFORT [None]
  - CHEST PAIN [None]
  - COSTOCHONDRITIS [None]
  - DEPRESSION [None]
  - DYSPAREUNIA [None]
  - DYSPNOEA [None]
  - EJECTION FRACTION DECREASED [None]
  - FATIGUE [None]
  - FIBROMYALGIA [None]
  - GASTROOESOPHAGEAL REFLUX DISEASE [None]
  - HEADACHE [None]
  - HYPERTRIGLYCERIDAEMIA [None]
  - INTESTINAL OBSTRUCTION [None]
  - MITRAL VALVE INCOMPETENCE [None]
  - MOOD DISORDER DUE TO A GENERAL MEDICAL CONDITION [None]
  - MULTIPLE INJURIES [None]
  - OVARIAN ADHESION [None]
  - PAIN [None]
  - PALPITATIONS [None]
  - PELVIC ADHESIONS [None]
  - PELVIC PAIN [None]
  - POLYCYSTIC OVARIES [None]
  - SALPINGITIS [None]
  - SUPRAVENTRICULAR EXTRASYSTOLES [None]
  - TRICUSPID VALVE INCOMPETENCE [None]
